FAERS Safety Report 22383218 (Version 1)
Quarter: 2023Q2

REPORT INFORMATION
  Report Type: Spontaneous
  Country: FI (occurrence: FI)
  Receive Date: 20230530
  Receipt Date: 20230530
  Transmission Date: 20230721
  Serious: Yes (Other)
  Sender: FDA-Public Use
  Company Number: FI-MEDAC-2023000694

PATIENT
  Sex: Female

DRUGS (2)
  1. METHOTREXATE [Suspect]
     Active Substance: METHOTREXATE
     Indication: Psoriatic arthropathy
     Dosage: USING METHOTREXATE FOR ABOUT 7 YRS, HALF OF THAT
     Route: 065
     Dates: start: 2016
  2. METHOTREXATE [Suspect]
     Active Substance: METHOTREXATE
     Indication: Psoriatic arthropathy
     Dosage: 20 MILLIGRAM (USING METHOTREXATE FOR ABOUT 7 YRS)
     Route: 065

REACTIONS (3)
  - Arrhythmia [Recovered/Resolved]
  - Dyspnoea [Recovering/Resolving]
  - Nausea [Recovered/Resolved]
